FAERS Safety Report 4751533-X (Version None)
Quarter: 2005Q3

REPORT INFORMATION
  Report Type: 
  Country: None (occurrence: None)
  Receive Date: 20050822
  Receipt Date: 20050812
  Transmission Date: 20060218
  Serious: Yes (Hospitalization)
  Sender: FDA-Public Use
  Company Number: HQWYE460620AUG04

PATIENT
  Age: 63 Year
  Sex: Female

DRUGS (4)
  1. PREMIQUE (CONJUGATED ESTROGENS/MEDROXYPROGESTERONE ACETATE, TABLET, UN [Suspect]
     Indication: HORMONE REPLACEMENT THERAPY
     Dosage: ORAL
     Route: 048
     Dates: start: 20030619, end: 20040826
  2. CLOBETASOL PROPIONATE [Concomitant]
  3. COD-LIVER OIL ^VITAGLOW^ (COD-LIVER OIL) [Concomitant]
  4. BECLOMETHASONE DIPROPIONATE [Concomitant]

REACTIONS (4)
  - ENDOMETRIAL SARCOMA [None]
  - IATROGENIC INJURY [None]
  - LIVER FUNCTION TEST ABNORMAL [None]
  - UTERINE PERFORATION [None]
